FAERS Safety Report 5366882-4 (Version None)
Quarter: 2007Q2

REPORT INFORMATION
  Report Type: 
  Country: None (occurrence: None)
  Receive Date: 20070622
  Receipt Date: 20061023
  Transmission Date: 20071010
  Serious: No
  Sender: FDA-Public Use
  Company Number: US-ASTRAZENECA-2006UW20404

PATIENT
  Sex: Male

DRUGS (4)
  1. RHINOCORT [Suspect]
     Indication: DYSPNOEA
     Dosage: 1 SPRAY EACH SIDE OF NOSE
     Route: 045
     Dates: start: 20061018
  2. LUNESTA [Concomitant]
  3. AMBIEN [Concomitant]
  4. AFRIN [Concomitant]

REACTIONS (2)
  - HEADACHE [None]
  - RHINORRHOEA [None]
